FAERS Safety Report 6252545-X (Version None)
Quarter: 2009Q2

REPORT INFORMATION
  Report Type: 
  Country: None (occurrence: None)
  Receive Date: 20090629
  Receipt Date: 20090629
  Transmission Date: 20091009
  Serious: No
  Sender: FDA-Public Use
  Company Number: None

PATIENT
  Age: 64 Year
  Sex: Female
  Weight: 58.9676 kg

DRUGS (1)
  1. CARTIA XT [Suspect]
     Dosage: 1 DAILY 10 OR 11 MONTH 08
     Dates: start: 20080101

REACTIONS (1)
  - MUSCULOSKELETAL PAIN [None]
